FAERS Safety Report 5064115-X (Version None)
Quarter: 2006Q3

REPORT INFORMATION
  Report Type: 
  Country: None (occurrence: None)
  Receive Date: 20060706
  Receipt Date: 20060330
  Transmission Date: 20061208
  Serious: No
  Sender: FDA-Public Use
  Company Number: 200610655BWH

PATIENT
  Sex: Male

DRUGS (2)
  1. LEVITRA [Suspect]
     Indication: DRUG USE FOR UNKNOWN INDICATION
     Dosage: ORAL
     Route: 048
  2. TRICOR [Concomitant]

REACTIONS (3)
  - DRUG INEFFECTIVE [None]
  - ENERGY INCREASED [None]
  - ERECTILE DYSFUNCTION [None]
